FAERS Safety Report 8346529-5 (Version None)
Quarter: 2012Q1

REPORT INFORMATION
  Report Type: 
  Country: None (occurrence: None)
  Receive Date: 20120315
  Receipt Date: 20110506
  Transmission Date: 20120608
  Serious: No
  Sender: FDA-Public Use
  Company Number: PHHY2011US39673

PATIENT
  Sex: Male

DRUGS (1)
  1. GILENYA [Suspect]
     Dosage: , ORAL
     Route: 048

REACTIONS (2)
  - PROSTATIC DISORDER [None]
  - CONCOMITANT DISEASE AGGRAVATED [None]
